FAERS Safety Report 9267941 (Version 1)
Quarter: 2013Q2

REPORT INFORMATION
  Report Type: Spontaneous
  Country: US (occurrence: US)
  Receive Date: 20130502
  Receipt Date: 20130502
  Transmission Date: 20140414
  Serious: No
  Sender: FDA-Public Use
  Company Number: US-ALEXION-A201201500

PATIENT
  Age: 4 Year
  Sex: Female
  Weight: 15.3 kg

DRUGS (4)
  1. SOLIRIS 300MG [Suspect]
     Indication: HAEMOLYTIC URAEMIC SYNDROME
     Dosage: 600 MG, SINGLE
     Route: 042
     Dates: start: 20120803, end: 20120803
  2. SOLIRIS 300MG [Suspect]
     Dosage: 300 MG
     Route: 042
     Dates: start: 20120810
  3. PENICILLIN [Concomitant]
     Indication: PROPHYLAXIS
     Dosage: UNK
  4. PANTOPRAZOLE [Concomitant]
     Indication: GASTROOESOPHAGEAL REFLUX DISEASE
     Dosage: UNK

REACTIONS (1)
  - Leukaemoid reaction [Recovered/Resolved]
